FAERS Safety Report 24086274 (Version 2)
Quarter: 2024Q3

REPORT INFORMATION
  Report Type: Spontaneous
  Country: DE (occurrence: DE)
  Receive Date: 20240712
  Receipt Date: 20240722
  Transmission Date: 20241017
  Serious: Yes (Other)
  Sender: VERTEX
  Company Number: DE-VERTEX PHARMACEUTICALS-2024-011375

PATIENT
  Sex: Female

DRUGS (1)
  1. ELEXACAFTOR\IVACAFTOR\TEZACAFTOR [Suspect]
     Active Substance: ELEXACAFTOR\IVACAFTOR\TEZACAFTOR
     Indication: Cystic fibrosis
     Dosage: UNKNOWN DOSAGE REGIMEN
     Route: 048
     Dates: end: 202405

REACTIONS (2)
  - Psychiatric symptom [Not Recovered/Not Resolved]
  - Mania [Recovering/Resolving]

NARRATIVE: CASE EVENT DATE: 20240101
